FAERS Safety Report 7994539-X (Version None)
Quarter: 2011Q4

REPORT INFORMATION
  Report Type: 
  Country: None (occurrence: None)
  Receive Date: 20111217
  Receipt Date: 20111217
  Transmission Date: 20120403
  Serious: Yes (Death, Hospitalization)
  Sender: FDA-Public Use
  Company Number: None

PATIENT
  Sex: Female
  Weight: 85.09 kg

DRUGS (2)
  1. CISPLATIN [Suspect]
     Dosage: 141 MG
     Dates: end: 20110608
  2. VINORELBINE TARTRATE [Suspect]
     Dosage: 112 MG
     Dates: end: 20110616

REACTIONS (12)
  - FEBRILE NEUTROPENIA [None]
  - STAPHYLOCOCCUS TEST POSITIVE [None]
  - HYPOKALAEMIA [None]
  - ATRIAL FIBRILLATION [None]
  - ACUTE RESPIRATORY DISTRESS SYNDROME [None]
  - INFECTION [None]
  - DIARRHOEA [None]
  - PAIN [None]
  - PNEUMOTHORAX [None]
  - DEHYDRATION [None]
  - BRONCHOPLEURAL FISTULA [None]
  - CARDIOPULMONARY FAILURE [None]
